FAERS Safety Report 12281005 (Version 3)
Quarter: 2016Q3

REPORT INFORMATION
  Report Type: Spontaneous
  Country: US (occurrence: US)
  Receive Date: 20160419
  Receipt Date: 20160718
  Transmission Date: 20161109
  Serious: Yes (Other)
  Sender: FDA-Public Use
  Company Number: US-GLENMARK PHARMACEUTICALS INC, USA.-2016GMK022602

PATIENT

DRUGS (2)
  1. BANDAGE [Concomitant]
     Active Substance: BENZALKONIUM CHLORIDE
     Indication: PRODUCT USED FOR UNKNOWN INDICATION
  2. CICLOPIROX. [Suspect]
     Active Substance: CICLOPIROX
     Indication: HYPERKERATOSIS
     Dosage: 1 DF, OD (ONE APPLICATION)
     Route: 061
     Dates: start: 20160328, end: 20160329

REACTIONS (8)
  - Dry gangrene [Not Recovered/Not Resolved]
  - Onychomadesis [Unknown]
  - Drug administered at inappropriate site [Unknown]
  - Off label use [Unknown]
  - Application site exfoliation [Not Recovered/Not Resolved]
  - Burns third degree [Unknown]
  - Application site discolouration [Not Recovered/Not Resolved]
  - Burns second degree [Unknown]

NARRATIVE: CASE EVENT DATE: 20160328
